FAERS Safety Report 24656306 (Version 1)
Quarter: 2024Q4

REPORT INFORMATION
  Report Type: Spontaneous
  Country: US (occurrence: US)
  Receive Date: 20241124
  Receipt Date: 20241124
  Transmission Date: 20250115
  Serious: Yes (Hospitalization)
  Sender: PIRAMAL
  Company Number: US-PIRAMAL CRITICAL CARE LIMITED-2024-PPL-000869

PATIENT

DRUGS (1)
  1. GABLOFEN [Suspect]
     Active Substance: BACLOFEN
     Indication: Product used for unknown indication
     Dosage: 374.5 MICROGRAM
     Route: 037

REACTIONS (2)
  - Toxicity to various agents [Not Recovered/Not Resolved]
  - Withdrawal syndrome [Not Recovered/Not Resolved]
